FAERS Safety Report 10102500 (Version 2)
Quarter: 2014Q3

REPORT INFORMATION
  Report Type: Spontaneous
  Country: JP (occurrence: JP)
  Receive Date: 20140424
  Receipt Date: 20140711
  Transmission Date: 20150326
  Serious: Yes (Other)
  Sender: FDA-Public Use
  Company Number: JP-ROCHE-1384028

PATIENT
  Age: 55 Year
  Sex: Male
  Weight: 56 kg

DRUGS (24)
  1. XELODA [Suspect]
     Active Substance: CAPECITABINE
     Indication: COLON CANCER METASTATIC
     Dosage: TWO COURSES
     Route: 048
     Dates: start: 20130830, end: 20130913
  2. XELODA [Suspect]
     Active Substance: CAPECITABINE
     Indication: COLON CANCER
     Dosage: FIVE COURSES
     Route: 048
     Dates: start: 20130930, end: 20131018
  3. ELPLAT [Suspect]
     Active Substance: OXALIPLATIN
     Indication: COLON CANCER METASTATIC
     Dosage: DOSAGE IS UNCERTAIN. ?TWO COURSES
     Route: 041
     Dates: start: 20130924, end: 20130924
  4. ELPLAT [Suspect]
     Active Substance: OXALIPLATIN
     Indication: COLON CANCER
     Dosage: DOSAGE IS UNCERTAIN.
     Route: 041
     Dates: start: 20130930, end: 20130930
  5. TRAMAL [Concomitant]
     Active Substance: TRAMADOL
     Route: 048
  6. MAGMITT [Concomitant]
     Active Substance: MAGNESIUM OXIDE
     Route: 048
  7. XELODA [Suspect]
     Active Substance: CAPECITABINE
     Route: 048
     Dates: start: 20140103, end: 20140116
  8. XELODA [Suspect]
     Active Substance: CAPECITABINE
     Route: 048
     Dates: start: 20140314, end: 20140315
  9. OPSO [Concomitant]
     Active Substance: MORPHINE HYDROCHLORIDE
     Route: 048
  10. MORPHINE SULFATE. [Concomitant]
     Active Substance: MORPHINE SULFATE
     Indication: PAIN
     Dosage: DRUG REPORTED AS MORPHES
     Route: 048
     Dates: start: 20140224, end: 20140331
  11. XELODA [Suspect]
     Active Substance: CAPECITABINE
     Route: 048
     Dates: start: 20131122, end: 20131205
  12. ELPLAT [Suspect]
     Active Substance: OXALIPLATIN
     Route: 041
     Dates: start: 20140221, end: 20140221
  13. LENDORMIN D [Concomitant]
     Active Substance: BROTIZOLAM
     Route: 048
  14. GRANISETRON [Concomitant]
     Active Substance: GRANISETRON
     Route: 041
  15. XELODA [Suspect]
     Active Substance: CAPECITABINE
     Indication: COLON CANCER
     Route: 048
     Dates: start: 20131028, end: 20131110
  16. HYPEN (JAPAN) [Concomitant]
     Route: 048
  17. XELODA [Suspect]
     Active Substance: CAPECITABINE
     Route: 048
     Dates: start: 20131213, end: 20131226
  18. XELODA [Suspect]
     Active Substance: CAPECITABINE
     Route: 048
     Dates: start: 20140221, end: 20140306
  19. XELODA [Suspect]
     Active Substance: CAPECITABINE
     Route: 048
     Dates: start: 20140124, end: 20140206
  20. ELPLAT [Suspect]
     Active Substance: OXALIPLATIN
     Route: 041
     Dates: start: 20140314, end: 20140314
  21. DEXART [Concomitant]
     Active Substance: DEXAMETHASONE SODIUM PHOSPHATE
     Route: 065
  22. PYDOXAL [Concomitant]
     Active Substance: PYRIDOXAL
     Route: 048
  23. NOVAMIN (JAPAN) [Concomitant]
     Route: 048
  24. SODIUM CHLORIDE. [Concomitant]
     Active Substance: SODIUM CHLORIDE
     Dosage: ISOTONIC SOLUTION
     Route: 065

REACTIONS (4)
  - Leukoencephalopathy [Recovered/Resolved]
  - Vomiting [Recovered/Resolved]
  - Nausea [Recovered/Resolved]
  - Dizziness [Recovered/Resolved]

NARRATIVE: CASE EVENT DATE: 20140314
